FAERS Safety Report 9188031 (Version 2)
Quarter: 2013Q2

REPORT INFORMATION
  Report Type: Spontaneous
  Country: US (occurrence: US)
  Receive Date: 20130325
  Receipt Date: 20130528
  Transmission Date: 20140414
  Serious: Yes (Death, Life-Threatening)
  Sender: FDA-Public Use
  Company Number: US-GLAXOSMITHKLINE-A1016946A

PATIENT
  Sex: Male

DRUGS (6)
  1. HYCAMTIN [Suspect]
     Indication: LUNG CARCINOMA CELL TYPE UNSPECIFIED STAGE 0
     Dosage: 4MG PER DAY
     Route: 048
     Dates: start: 20110718
  2. HYDROCODONE/ APAP [Concomitant]
  3. LORAZEPAM [Concomitant]
  4. BUPROPION [Concomitant]
  5. MIRTAZAPINE [Concomitant]
  6. ONDANSETRON [Concomitant]

REACTIONS (2)
  - Sudden death [Fatal]
  - Cardiac disorder [Fatal]
